FAERS Safety Report 15540753 (Version 2)
Quarter: 2018Q4

REPORT INFORMATION
  Report Type: Spontaneous
  Country: US (occurrence: US)
  Receive Date: 20181023
  Receipt Date: 20181024
  Transmission Date: 20190205
  Serious: No
  Sender: FDA-Public Use
  Company Number: US-HETERO CORPORATE-HET2018US01098

PATIENT
  Sex: Female

DRUGS (1)
  1. MONTELUKAST [Suspect]
     Active Substance: MONTELUKAST SODIUM
     Indication: HYPERSENSITIVITY
     Dosage: 10 MG, QD
     Dates: start: 2018, end: 201809

REACTIONS (2)
  - Head discomfort [Unknown]
  - Fatigue [Unknown]

NARRATIVE: CASE EVENT DATE: 2018
